FAERS Safety Report 12632956 (Version 1)
Quarter: 2016Q3

REPORT INFORMATION
  Report Type: Spontaneous
  Country: US (occurrence: None)
  Receive Date: 20160808
  Receipt Date: 20160808
  Transmission Date: 20161109
  Serious: Yes (Other)
  Sender: FDA-Public Use
  Company Number: None

PATIENT
  Age: 66 Year
  Sex: Male
  Weight: 79.38 kg

DRUGS (2)
  1. CELECOXIB, 200 MG [Suspect]
     Active Substance: CELECOXIB
     Indication: TENDONITIS
     Dates: start: 20160717
  2. CELECOXIB, 200 MG [Suspect]
     Active Substance: CELECOXIB
     Indication: OSTEOARTHRITIS
     Dates: start: 20160717

REACTIONS (4)
  - Tendonitis [None]
  - Osteoarthritis [None]
  - Product substitution issue [None]
  - Pain [None]

NARRATIVE: CASE EVENT DATE: 20160807
